FAERS Safety Report 4620997-4 (Version None)
Quarter: 2005Q1

REPORT INFORMATION
  Report Type: 
  Country: None (occurrence: None)
  Receive Date: 20050325
  Receipt Date: 20050318
  Transmission Date: 20050727
  Serious: Yes (Life-Threatening)
  Sender: FDA-Public Use
  Company Number: 05H-056-0294744-00

PATIENT
  Age: 36 Year
  Sex: Male
  Weight: 80 kg

DRUGS (6)
  1. PENTOTHAL [Suspect]
     Indication: INDUCTION OF ANAESTHESIA
     Dosage: 500 MG, INTRAVENOUS
     Route: 042
     Dates: start: 20050220, end: 20050220
  2. SUXAMETHONIUM [Suspect]
     Indication: INDUCTION OF ANAESTHESIA
     Dosage: 100 MG, INTRAVENOUS
     Route: 042
     Dates: start: 20050220, end: 20050220
  3. DESFLURANE [Suspect]
     Indication: MAINTENANCE OF ANAESTHESIA
     Dosage: INHALATION
     Route: 055
     Dates: start: 20050220, end: 20050221
  4. SUFENTANIL CITRATE [Suspect]
     Indication: MAINTENANCE OF ANAESTHESIA
     Dosage: 60, ^LAST IV FLUSH AT 11:00 PM^, INTRAVENOUS
     Route: 042
     Dates: start: 20050220, end: 20050220
  5. ROPIVACAINE [Suspect]
     Indication: ANAESTHESIA
     Dosage: 7.5 MILLIGRAM/MILLILITERS, 15 ML, NOT REPORTED
     Dates: start: 20050221, end: 20050221
  6. ONDANSETRON [Suspect]
     Indication: POST PROCEDURAL NAUSEA
     Dosage: INTRAVENOUS
     Route: 042
     Dates: start: 20050221, end: 20050221

REACTIONS (6)
  - ATRIAL FIBRILLATION [None]
  - BRADYCARDIA [None]
  - CARDIAC ARREST [None]
  - POST PROCEDURAL NAUSEA [None]
  - TORSADE DE POINTES [None]
  - VENTRICULAR HYPOKINESIA [None]
